FAERS Safety Report 7820100-3 (Version None)
Quarter: 2011Q4

REPORT INFORMATION
  Report Type: 
  Country: None (occurrence: None)
  Receive Date: 20111018
  Receipt Date: 20111013
  Transmission Date: 20120403
  Serious: Yes (Other)
  Sender: FDA-Public Use
  Company Number: FR-PFIZER INC-2011244619

PATIENT
  Age: 71 Year
  Sex: Male

DRUGS (16)
  1. DURAGESIC-100 [Suspect]
     Dosage: 100A?G/72H
     Route: 062
  2. OMEPRAZOLE [Concomitant]
     Dosage: 1 DOSAGE FORM DAILY
  3. TIAPRIDAL [Concomitant]
     Dosage: 1 DOSAGE FORM DAILY
  4. TRIMEPRAZINE TARTRATE [Suspect]
     Dosage: 10 MG DAILY
     Route: 048
     Dates: end: 20110730
  5. TRANXENE [Suspect]
     Dosage: 20 MG DAILY
     Route: 048
     Dates: end: 20110730
  6. LANTUS [Concomitant]
     Dosage: UNK
  7. VASTAREL [Concomitant]
     Dosage: 2 DOSAGE FORMS DAILY
  8. NEURONTIN [Suspect]
     Dosage: 100 MG, 3X/DAY
     Route: 048
     Dates: end: 20110730
  9. LYRICA [Concomitant]
     Dosage: 2 DOSAGE FORMS DAILY
  10. DOXAZOSIN MESYLATE [Concomitant]
     Dosage: UNK
  11. ALPRAZOLAM [Concomitant]
     Dosage: 3 DOSAGE FORMS DAILY
  12. ACETAMINOPHEN [Concomitant]
     Dosage: UNK
  13. GLYBURIDE [Concomitant]
     Dosage: UNK
  14. MORPHINE SULFATE [Suspect]
     Dosage: 40 MG DAILY
     Route: 048
     Dates: end: 20110730
  15. CYMBALTA [Concomitant]
     Dosage: 1 DOSAGE FORM DAILY
  16. FENOFIBRATE [Concomitant]
     Dosage: 1 DOSAGE FORM DAILY

REACTIONS (4)
  - FALL [None]
  - GAIT DISTURBANCE [None]
  - SOMNOLENCE [None]
  - MUSCULAR WEAKNESS [None]
